FAERS Safety Report 4848803-3 (Version None)
Quarter: 2005Q4

REPORT INFORMATION
  Report Type: 
  Country: None (occurrence: None)
  Receive Date: 20051115
  Receipt Date: 20050831
  Transmission Date: 20060501
  Serious: No
  Sender: FDA-Public Use
  Company Number: S05-USA-04133-01

PATIENT
  Age: 53 Year
  Sex: Female

DRUGS (5)
  1. NAMENDA [Suspect]
     Indication: NARCOLEPSY
     Dosage: 15 MG QD PO
     Route: 048
     Dates: start: 20050828
  2. NAMENDA [Suspect]
     Indication: NARCOLEPSY
     Dosage: 5 MG QD PO
     Route: 048
     Dates: start: 20050814, end: 20050820
  3. NAMENDA [Suspect]
     Indication: NARCOLEPSY
     Dosage: 5 MG BID PO
     Route: 048
     Dates: start: 20050821, end: 20050827
  4. PLAVIX [Concomitant]
  5. LIPITOR [Concomitant]

REACTIONS (1)
  - DIZZINESS [None]
